FAERS Safety Report 8508621 (Version 2)
Quarter: 2012Q4

REPORT INFORMATION
  Report Type: 
  Country: US (occurrence: US)
  Receive Date: 20120412
  Receipt Date: 20121030
  Transmission Date: 20130627
  Serious: No
  Sender: FDA-Public Use
  Company Number: US-ASTRAZENECA-2012SE03096

PATIENT
  Age: 31 Year
  Sex: Female

DRUGS (1)
  1. NEXIUM [Suspect]
     Indication: CROHN^S DISEASE
     Route: 048

REACTIONS (4)
  - Gastrooesophageal reflux disease [Unknown]
  - Malaise [Unknown]
  - Drug prescribing error [Unknown]
  - Drug dose omission [Unknown]
